FAERS Safety Report 13572513 (Version 1)
Quarter: 2017Q2

REPORT INFORMATION
  Report Type: Spontaneous
  Country: US (occurrence: US)
  Receive Date: 20170523
  Receipt Date: 20170523
  Transmission Date: 20170830
  Serious: Yes (Hospitalization, Disabling, Other)
  Sender: FDA-Public Use
  Company Number: None

PATIENT
  Age: 12 Year
  Sex: Female
  Weight: 36 kg

DRUGS (6)
  1. CLARITIN REDI-TABS [Concomitant]
  2. ALBUTEROL INHALER [Concomitant]
     Active Substance: ALBUTEROL
  3. STAR WARS CHILDREN^S GUMMY VITAMINS [Concomitant]
  4. CHILDREN^S ALLEGRA [Concomitant]
  5. PREDNISOLONE 15MG/5ML SOLN [Suspect]
     Active Substance: PREDNISOLONE
     Indication: ECZEMA
     Dosage: ?          QUANTITY:90 TABLESPOON(S);OTHER FREQUENCY:2XDAILY3DAYS, 1X/3;?
     Route: 048
     Dates: start: 20170323, end: 20170325
  6. PREDNISOLONE ORAL SOLUTION USP [Suspect]
     Active Substance: PREDNISOLONE
     Indication: DERMATITIS BULLOUS
     Dosage: ?          QUANTITY:8.3 ML;?
     Route: 048
     Dates: start: 20170508, end: 20170521

REACTIONS (5)
  - Blister [None]
  - Systemic lupus erythematosus [None]
  - Scab [None]
  - Tongue blistering [None]
  - Rash [None]

NARRATIVE: CASE EVENT DATE: 20170325
